FAERS Safety Report 24200110 (Version 1)
Quarter: 2024Q3

REPORT INFORMATION
  Report Type: Spontaneous
  Country: US (occurrence: US)
  Receive Date: 20240812
  Receipt Date: 20240812
  Transmission Date: 20241017
  Serious: Yes (Other)
  Sender: BAYER
  Company Number: US-BAYER-2024A114412

PATIENT
  Age: 5 Year
  Sex: Male

DRUGS (1)
  1. KOVALTRY [Suspect]
     Active Substance: ANTIHEMOPHILIC FACTOR, HUMAN RECOMBINANT
     Indication: Haemorrhage
     Dosage: 550 UNITS (+/-10%) EVERY 24 HOURS AS NEEDED

REACTIONS (1)
  - Mouth haemorrhage [Recovered/Resolved]

NARRATIVE: CASE EVENT DATE: 20240727
